FAERS Safety Report 6366655-X (Version None)
Quarter: 2009Q3

REPORT INFORMATION
  Report Type: 
  Country: None (occurrence: None)
  Receive Date: 20090921
  Receipt Date: 20090910
  Transmission Date: 20100115
  Serious: Yes (Other)
  Sender: FDA-Public Use
  Company Number: PHHY2009JP35276

PATIENT
  Age: 12 Year
  Sex: Male

DRUGS (9)
  1. NEORAL [Suspect]
     Indication: STEM CELL TRANSPLANT
     Dosage: UNK
  2. MELPHALAN [Suspect]
     Indication: STEM CELL TRANSPLANT
     Dosage: UNK
  3. BUSULFAN [Suspect]
     Indication: STEM CELL TRANSPLANT
     Dosage: UNK
     Route: 042
  4. METHOTREXATE [Suspect]
     Indication: STEM CELL TRANSPLANT
  5. ACYCLOVIR [Concomitant]
     Indication: INFECTION PROPHYLAXIS
  6. PIPERACILLIN [Concomitant]
     Indication: INFECTION PROPHYLAXIS
  7. FOSFLUCONAZOLE [Concomitant]
     Indication: INFECTION PROPHYLAXIS
  8. CEFOZOPRAN [Concomitant]
  9. MEROPENEM [Concomitant]

REACTIONS (6)
  - FEBRILE NEUTROPENIA [None]
  - NAUSEA [None]
  - ODYNOPHAGIA [None]
  - ORAL DISORDER [None]
  - ORAL PAIN [None]
  - VOMITING [None]
